FAERS Safety Report 18766551 (Version 4)
Quarter: 2025Q4

REPORT INFORMATION
  Report Type: Report from Study
  Country: US (occurrence: US)
  Receive Date: 20210121
  Receipt Date: 20251014
  Transmission Date: 20260119
  Serious: No
  Sender: KYOWA
  Company Number: US-KYOWAKIRIN-2021BKK000545

PATIENT

DRUGS (4)
  1. CRYSVITA [Suspect]
     Active Substance: BUROSUMAB-TWZA
     Indication: Hereditary hypophosphataemic rickets
     Dosage: 10 MG, 1X/2 WEEKS
     Route: 058
     Dates: start: 20200624
  2. CRYSVITA [Suspect]
     Active Substance: BUROSUMAB-TWZA
     Dosage: 15 MG, 1X/2 WEEKS
     Route: 058
     Dates: start: 20210119
  3. CRYSVITA [Suspect]
     Active Substance: BUROSUMAB-TWZA
     Dosage: 15 MG, 1X/2 WEEKS
     Route: 058
     Dates: start: 20250909
  4. CRYSVITA [Suspect]
     Active Substance: BUROSUMAB-TWZA
     Dosage: 15 MG, 1X/2 WEEKS
     Route: 058

REACTIONS (3)
  - Blood phosphorus decreased [Unknown]
  - Laboratory test abnormal [Unknown]
  - Inappropriate schedule of product administration [Recovered/Resolved]

NARRATIVE: CASE EVENT DATE: 20250901
